FAERS Safety Report 9863522 (Version 2)
Quarter: 2014Q1

REPORT INFORMATION
  Report Type: Spontaneous
  Country: JP (occurrence: JP)
  Receive Date: 20140203
  Receipt Date: 20140206
  Transmission Date: 20141002
  Serious: Yes (Other)
  Sender: FDA-Public Use
  Company Number: JP-PFIZER INC-2014026031

PATIENT
  Age: 76 Year
  Sex: Male

DRUGS (2)
  1. SUTENT [Suspect]
     Indication: RENAL CELL CARCINOMA
     Dosage: UNK
     Route: 048
     Dates: end: 20140127
  2. SUTENT [Suspect]
     Dosage: UNK
     Route: 048
     Dates: start: 20140203

REACTIONS (3)
  - Fracture [Unknown]
  - Disease progression [Unknown]
  - Renal cell carcinoma [Unknown]
